FAERS Safety Report 7762727-3 (Version None)
Quarter: 2011Q3

REPORT INFORMATION
  Report Type: 
  Country: None (occurrence: None)
  Receive Date: 20110920
  Receipt Date: 20110919
  Transmission Date: 20111222
  Serious: Yes (Life-Threatening, Hospitalization)
  Sender: FDA-Public Use
  Company Number: GB-PFIZER INC-2011222409

PATIENT
  Age: 59 Year
  Sex: Male
  Weight: 55 kg

DRUGS (2)
  1. VARENICLINE TARTRATE [Suspect]
     Indication: SMOKING CESSATION THERAPY
     Dosage: 2 MG, UNK
     Route: 048
     Dates: start: 20110602, end: 20110804
  2. ETORICOXIB [Concomitant]
     Dosage: UNK
     Dates: start: 20110601, end: 20110101

REACTIONS (3)
  - CARDIOGENIC SHOCK [None]
  - HYPOTENSION [None]
  - ACUTE MYOCARDIAL INFARCTION [None]
